FAERS Safety Report 21568980 (Version 5)
Quarter: 2023Q2

REPORT INFORMATION
  Report Type: Spontaneous
  Country: US (occurrence: US)
  Receive Date: 20221108
  Receipt Date: 20230501
  Transmission Date: 20230722
  Serious: Yes (Other)
  Sender: FDA-Public Use
  Company Number: US-BEH-2022151587

PATIENT
  Age: 65 Year
  Sex: Male

DRUGS (16)
  1. IDELVION [Suspect]
     Active Substance: COAGULATION FACTOR IX RECOMBINANT HUMAN
     Indication: Factor IX deficiency
     Dosage: 5650 INTERNATIONAL UNIT, PRN
     Route: 042
     Dates: start: 202209
  2. IDELVION [Suspect]
     Active Substance: COAGULATION FACTOR IX RECOMBINANT HUMAN
     Indication: Factor IX deficiency
     Dosage: 5650 INTERNATIONAL UNIT, PRN
     Route: 042
     Dates: start: 202209
  3. IDELVION [Suspect]
     Active Substance: COAGULATION FACTOR IX RECOMBINANT HUMAN
     Indication: Prophylaxis
     Dosage: 11100 INTERNATIONAL UNIT, QOW
     Route: 042
     Dates: start: 202209
  4. IDELVION [Suspect]
     Active Substance: COAGULATION FACTOR IX RECOMBINANT HUMAN
     Indication: Prophylaxis
     Dosage: 11100 INTERNATIONAL UNIT, QOW
     Route: 042
     Dates: start: 202209
  5. IDELVION [Suspect]
     Active Substance: COAGULATION FACTOR IX RECOMBINANT HUMAN
     Dosage: 11100 INTERNATIONAL UNIT, QOW
     Route: 042
     Dates: start: 202107
  6. IDELVION [Suspect]
     Active Substance: COAGULATION FACTOR IX RECOMBINANT HUMAN
     Dosage: 11100 INTERNATIONAL UNIT, QOW
     Route: 042
     Dates: start: 202107
  7. IDELVION [Suspect]
     Active Substance: COAGULATION FACTOR IX RECOMBINANT HUMAN
     Dosage: 2139 INTERNATIONAL UNIT, QOW
     Route: 042
     Dates: start: 20200630
  8. IDELVION [Suspect]
     Active Substance: COAGULATION FACTOR IX RECOMBINANT HUMAN
     Dosage: 2139 INTERNATIONAL UNIT, QOW
     Route: 042
     Dates: start: 20200630
  9. IDELVION [Suspect]
     Active Substance: COAGULATION FACTOR IX RECOMBINANT HUMAN
     Dosage: 1093 INTERNATIONAL UNIT, QOW
     Route: 042
     Dates: start: 20200630
  10. IDELVION [Suspect]
     Active Substance: COAGULATION FACTOR IX RECOMBINANT HUMAN
     Dosage: 1093 INTERNATIONAL UNIT, QOW
     Route: 042
     Dates: start: 20200630
  11. IDELVION [Suspect]
     Active Substance: COAGULATION FACTOR IX RECOMBINANT HUMAN
     Dosage: 7762 INTERNATIONAL UNIT, QOW
     Route: 042
     Dates: start: 20200630
  12. IDELVION [Suspect]
     Active Substance: COAGULATION FACTOR IX RECOMBINANT HUMAN
     Dosage: 7762 INTERNATIONAL UNIT, QOW
     Route: 042
     Dates: start: 20200630
  13. IDELVION [Suspect]
     Active Substance: COAGULATION FACTOR IX RECOMBINANT HUMAN
     Dosage: 11000 INTERNATIONAL UNIT, QOW
     Route: 042
     Dates: start: 202006
  14. IDELVION [Suspect]
     Active Substance: COAGULATION FACTOR IX RECOMBINANT HUMAN
     Dosage: 11000 INTERNATIONAL UNIT, QOW
     Route: 042
     Dates: start: 202006
  15. IDELVION [Suspect]
     Active Substance: COAGULATION FACTOR IX RECOMBINANT HUMAN
     Dosage: 10700 INTERNATIONAL UNIT, QOW
     Route: 042
  16. IDELVION [Suspect]
     Active Substance: COAGULATION FACTOR IX RECOMBINANT HUMAN
     Dosage: 10700 INTERNATIONAL UNIT, QOW
     Route: 042

REACTIONS (7)
  - Joint surgery [Unknown]
  - Weight decreased [Unknown]
  - Haemarthrosis [Not Recovered/Not Resolved]
  - Haemarthrosis [Recovered/Resolved]
  - Haemarthrosis [Recovered/Resolved]
  - Haemarthrosis [Recovered/Resolved]
  - Haemarthrosis [Recovered/Resolved]

NARRATIVE: CASE EVENT DATE: 20221119
